FAERS Safety Report 19632366 (Version 2)
Quarter: 2021Q3

REPORT INFORMATION
  Report Type: Spontaneous
  Country: US (occurrence: US)
  Receive Date: 20210729
  Receipt Date: 20210729
  Transmission Date: 20211014
  Serious: No
  Sender: FDA-Public Use
  Company Number: US-B.I. PHARMACEUTICALS,INC./RIDGEFIELD-2021-BI-118361

PATIENT
  Age: 11 Year

DRUGS (1)
  1. CATAPRESAN TTS [Suspect]
     Active Substance: CLONIDINE
     Indication: GROWTH HORMONE DEFICIENCY
     Dosage: 0.1 MG ONE?HALF PATCH

REACTIONS (2)
  - Intentional product misuse [Unknown]
  - Off label use [Unknown]
